FAERS Safety Report 7024986 (Version 8)
Quarter: 2013Q3

REPORT INFORMATION
  Report Type: Report from Study
  Country: CA (occurrence: CA)
  Receive Date: 20090616
  Receipt Date: 20130815
  Transmission Date: 20140515
  Serious: Yes (Hospitalization, Other)
  Sender: FDA-Public Use
  Company Number: PHHY2009CA22381

PATIENT
  Age: 45 Year
  Sex: Male

DRUGS (15)
  1. EXJADE [Suspect]
     Indication: THALASSAEMIA
     Dosage: 1500 MG
     Route: 048
     Dates: start: 2009
  2. EXJADE [Suspect]
     Dosage: 2000 MG
     Route: 048
     Dates: start: 201110
  3. EXJADE [Suspect]
     Dosage: UNK UKN, UNK
     Route: 048
  4. EXJADE [Suspect]
     Dosage: 1500 MG
     Route: 048
  5. EXJADE [Suspect]
     Dosage: 1000 MG
     Route: 048
  6. GABAPENTIN [Concomitant]
     Indication: PAIN
     Dosage: 300 MG, TID
  7. CARBAMAZEPINE [Concomitant]
     Dosage: 1.5 DF, (? TAB TID)
  8. HYDROMORPHONE [Concomitant]
     Dosage: 12 MG, BID
  9. METHADONE [Concomitant]
  10. SEROQUEL [Concomitant]
  11. CITALOPRAM [Concomitant]
  12. CORTISONE [Concomitant]
  13. PANTOPRAZOLE [Concomitant]
  14. MIRTAZAPINE [Concomitant]
  15. NABILONE [Concomitant]

REACTIONS (15)
  - Influenza [Unknown]
  - Weight decreased [Unknown]
  - Muscle spasms [Unknown]
  - Hypoacusis [Unknown]
  - Visual acuity reduced [Unknown]
  - Vomiting [Unknown]
  - Asthenia [Unknown]
  - Dysuria [Unknown]
  - Haemoglobin decreased [Unknown]
  - Flatulence [Unknown]
  - Abdominal pain upper [Unknown]
  - Abdominal distension [Unknown]
  - Fatigue [Unknown]
  - Diarrhoea [Unknown]
  - Constipation [Unknown]
